FAERS Safety Report 7014708-5 (Version None)
Quarter: 2010Q3

REPORT INFORMATION
  Report Type: 
  Country: None (occurrence: None)
  Receive Date: 20100927
  Receipt Date: 20100914
  Transmission Date: 20110219
  Serious: Yes (Other)
  Sender: FDA-Public Use
  Company Number: AU-ROCHE-726788

PATIENT
  Sex: Female
  Weight: 2.7 kg

DRUGS (1)
  1. ROFERON-A [Suspect]
     Dosage: DOSE: 3X10E6U.
     Route: 064

REACTIONS (2)
  - PNEUMOTHORAX [None]
  - PULMONARY OEDEMA [None]
